FAERS Safety Report 4909944-5 (Version None)
Quarter: 2006Q1

REPORT INFORMATION
  Report Type: 
  Country: None (occurrence: None)
  Receive Date: 20060208
  Receipt Date: 20051121
  Transmission Date: 20060701
  Serious: Yes (Hospitalization)
  Sender: FDA-Public Use
  Company Number: 2006013261

PATIENT
  Age: 75 Year
  Sex: Female

DRUGS (14)
  1. ATORVASTATIN CALCIUM [Suspect]
     Indication: ILL-DEFINED DISORDER
     Dosage: 40 MG (1 IN 1 D), ORAL
     Route: 048
  2. PANTOPRAZOLE SODIUM [Suspect]
     Indication: ILL-DEFINED DISORDER
     Dosage: 40 MG (1 IN 1 D), ORAL
     Route: 048
     Dates: start: 20050310
  3. TREVILOR      (VENLAFAXINE HYDROCHLORIDE) [Suspect]
     Indication: DEPRESSION
     Dosage: 37.5 MG (1 IN 1 D), ORAL; 75 MG, ORAL
     Route: 048
     Dates: start: 20050510, end: 20050510
  4. TREVILOR      (VENLAFAXINE HYDROCHLORIDE) [Suspect]
     Indication: DEPRESSION
     Dosage: 37.5 MG (1 IN 1 D), ORAL; 75 MG, ORAL
     Route: 048
     Dates: start: 20050511, end: 20050531
  5. DYTIDE H                (HYDOCHLOROTHIAZIDE, TRIAMTERENE) [Suspect]
     Indication: ILL-DEFINED DISORDER
     Dosage: 25 MG (1 IN 1 D), ORAL
     Route: 048
     Dates: start: 20050310
  6. TAVOR [Concomitant]
  7. ZOLPIDEM TARTRATE [Concomitant]
  8. SOLIAN (AMISULPRIDE) [Concomitant]
  9. LEVOTHYROXINE SODIUM [Concomitant]
  10. MIRTAZAPINE [Concomitant]
  11. CITALOPRAM HYDROBROMIDE [Concomitant]
  12. PLAVIX [Suspect]
     Indication: ILL-DEFINED DISORDER
     Dosage: 70 MG (DAILY), ORAL
     Route: 048
  13. XANEF (ENALAPRIL MALEATE) [Suspect]
     Indication: CARDIAC FAILURE
     Dosage: 15 MG (DAILY), ORAL
     Route: 048
  14. XANEF (ENALAPRIL MALEATE) [Suspect]
     Indication: HYPERTENSION
     Dosage: 15 MG (DAILY), ORAL
     Route: 048

REACTIONS (2)
  - DRUG INTERACTION [None]
  - HYPONATRAEMIA [None]
